FAERS Safety Report 9611234 (Version 2)
Quarter: 2013Q4

REPORT INFORMATION
  Report Type: Spontaneous
  Country: AU (occurrence: AU)
  Receive Date: 20131010
  Receipt Date: 20131129
  Transmission Date: 20140711
  Serious: Yes (Death, Life-Threatening, Disabling)
  Sender: FDA-Public Use
  Company Number: AU-009507513-1310AUS003901

PATIENT
  Age: 56 Year
  Sex: Male
  Weight: 95.24 kg

DRUGS (8)
  1. VICTRELIS 200 MG [Suspect]
     Indication: HEPATITIS C
     Dosage: 800 MG, TID
     Route: 048
     Dates: start: 20130627, end: 20130909
  2. RIBAVIRIN [Suspect]
     Indication: HEPATITIS C
     Dosage: UNK
     Route: 048
     Dates: start: 20130529, end: 20130909
  3. PEGINTERFERON ALFA-2B [Suspect]
     Indication: HEPATITIS C
     Dosage: UNK
     Route: 058
     Dates: start: 20130529, end: 20130904
  4. DIABEX [Concomitant]
     Dosage: UNK
     Route: 048
  5. COVERSYL (PERINDOPRIL ARGININE) [Concomitant]
     Dosage: UNK
     Route: 048
  6. NATRILIX [Concomitant]
     Dosage: UNK
     Route: 048
  7. PROPRANOLOL HYDROCHLORIDE [Concomitant]
     Dosage: UNK
     Route: 048
  8. SOMAC [Concomitant]
     Dosage: UNK
     Route: 048

REACTIONS (4)
  - Pneumonia [Fatal]
  - Fatigue [Unknown]
  - Diarrhoea [Unknown]
  - Mood altered [Unknown]
